FAERS Safety Report 15856415 (Version 3)
Quarter: 2019Q1

REPORT INFORMATION
  Report Type: Spontaneous
  Country: US (occurrence: US)
  Receive Date: 20190123
  Receipt Date: 20190319
  Transmission Date: 20190417
  Serious: No
  Sender: FDA-Public Use
  Company Number: US-BIOGEN-2018BI00671615

PATIENT
  Sex: Female

DRUGS (5)
  1. TECFIDERA [Suspect]
     Active Substance: DIMETHYL FUMARATE
     Dosage: MAINTENANCE DOSE
     Route: 050
     Dates: start: 20181201
  2. TECFIDERA [Suspect]
     Active Substance: DIMETHYL FUMARATE
     Indication: MULTIPLE SCLEROSIS
     Route: 050
     Dates: start: 20181130
  3. TECFIDERA [Suspect]
     Active Substance: DIMETHYL FUMARATE
     Dosage: 240MG EVERY EVENING FOR 7 DAYS
     Route: 050
  4. TECFIDERA [Suspect]
     Active Substance: DIMETHYL FUMARATE
     Dosage: 120MG EVERY EVENING FOR 7 DAYS
     Route: 050
  5. TECFIDERA [Suspect]
     Active Substance: DIMETHYL FUMARATE
     Dosage: 240MG TWICE DAILY THEREAFTER
     Route: 050

REACTIONS (8)
  - Immune system disorder [Not Recovered/Not Resolved]
  - Flushing [Recovered/Resolved]
  - Hypersensitivity [Unknown]
  - Abdominal discomfort [Unknown]
  - Upper respiratory tract infection [Unknown]
  - Dyspnoea [Recovered/Resolved]
  - Pruritus [Not Recovered/Not Resolved]
  - Nasopharyngitis [Recovered/Resolved]
